FAERS Safety Report 10171719 (Version 4)
Quarter: 2014Q3

REPORT INFORMATION
  Report Type: Spontaneous
  Country: US (occurrence: None)
  Receive Date: 20140512
  Receipt Date: 20140911
  Transmission Date: 20150326
  Serious: Yes (Other)
  Sender: FDA-Public Use
  Company Number: UTC-048394

PATIENT
  Age: 73 Year
  Sex: Female
  Weight: 71.7 kg

DRUGS (3)
  1. TYVASO [Suspect]
     Active Substance: TREPROSTINIL
     Indication: PULMONARY ARTERIAL HYPERTENSION
     Route: 055
     Dates: start: 20120917
  2. WARFARIN [Concomitant]
     Active Substance: WARFARIN
  3. SILDENAFIL [Concomitant]
     Active Substance: SILDENAFIL

REACTIONS (3)
  - Nausea [None]
  - Gastrointestinal disorder [None]
  - Anaemia [None]

NARRATIVE: CASE EVENT DATE: 2014
